FAERS Safety Report 20221797 (Version 1)
Quarter: 2021Q4

REPORT INFORMATION
  Report Type: Spontaneous
  Country: US (occurrence: None)
  Receive Date: 20211222
  Receipt Date: 20211222
  Transmission Date: 20220303
  Serious: Yes (Disabling, Other)
  Sender: FDA-Public Use
  Company Number: None

PATIENT
  Age: 37 Year
  Sex: Female
  Weight: 54 kg

DRUGS (1)
  1. REGEN-COV [Suspect]
     Active Substance: CASIRIVIMAB\IMDEVIMAB

REACTIONS (8)
  - Headache [None]
  - Infusion related reaction [None]
  - Infusion site extravasation [None]
  - Infusion site pain [None]
  - Burning sensation [None]
  - Hypoaesthesia [None]
  - Paraesthesia [None]
  - Dizziness [None]

NARRATIVE: CASE EVENT DATE: 20211125
